FAERS Safety Report 7926550-9 (Version None)
Quarter: 2011Q4

REPORT INFORMATION
  Report Type: 
  Country: None (occurrence: None)
  Receive Date: 20111118
  Receipt Date: 20111115
  Transmission Date: 20120403
  Serious: No
  Sender: FDA-Public Use
  Company Number: US-BIOGENIDEC-2011BI043741

PATIENT
  Sex: Male

DRUGS (3)
  1. TYSABRI [Suspect]
     Indication: MULTIPLE SCLEROSIS
     Route: 042
     Dates: start: 20070711
  2. TYSABRI [Suspect]
     Route: 042
     Dates: start: 20050122
  3. TYSABRI [Suspect]
     Route: 042

REACTIONS (1)
  - MULTIPLE SCLEROSIS RELAPSE [None]
